FAERS Safety Report 9405196 (Version 1)
Quarter: 2013Q3

REPORT INFORMATION
  Report Type: Spontaneous
  Country: FR (occurrence: None)
  Receive Date: 20130703
  Receipt Date: 20130703
  Transmission Date: 20140515
  Serious: Yes (Hospitalization)
  Sender: FDA-Public Use
  Company Number: 2013036667

PATIENT
  Age: 11 Month
  Sex: Male

DRUGS (3)
  1. PRIVIGEN [Suspect]
     Indication: KAWASAKI^S DISEASE
     Dates: start: 20130523, end: 20130523
  2. DOLIPRANE [Concomitant]
  3. ASPIRINE [Concomitant]

REACTIONS (4)
  - Vasoconstriction [None]
  - Livedo reticularis [None]
  - Blood pressure increased [None]
  - Chills [None]
